FAERS Safety Report 10350162 (Version 1)
Quarter: 2014Q3

REPORT INFORMATION
  Report Type: Spontaneous
  Country: US (occurrence: None)
  Receive Date: 20140728
  Receipt Date: 20140728
  Transmission Date: 20150326
  Serious: Yes (Other)
  Sender: FDA-Public Use
  Company Number: ADE14-025

PATIENT
  Age: 57 Year
  Sex: Female
  Weight: 107 kg

DRUGS (10)
  1. ANCEF [Concomitant]
     Active Substance: CEFAZOLIN SODIUM
  2. FENTANYL. [Concomitant]
     Active Substance: FENTANYL
  3. ZEMURON [Concomitant]
     Active Substance: ROCURONIUM BROMIDE
  4. INSULIN [Concomitant]
     Active Substance: INSULIN NOS
  5. ISO [Concomitant]
  6. VERSED [Concomitant]
     Active Substance: MIDAZOLAM HYDROCHLORIDE
  7. PRECEDEX [Concomitant]
     Active Substance: DEXMEDETOMIDINE HYDROCHLORIDE
  8. HEPARIN SODIUM. [Suspect]
     Active Substance: HEPARIN SODIUM
     Dosage: NOT SPECIFIED IV
     Dates: start: 20140703, end: 20140703
  9. ETOMIDATE. [Concomitant]
     Active Substance: ETOMIDATE
  10. SUCCHINYLCHOLINE [Concomitant]

REACTIONS (2)
  - Drug effect decreased [None]
  - Product quality issue [None]

NARRATIVE: CASE EVENT DATE: 20140703
